FAERS Safety Report 8828334 (Version 3)
Quarter: 2013Q4

REPORT INFORMATION
  Report Type: Report from Study
  Country: JP (occurrence: JP)
  Receive Date: 20121005
  Receipt Date: 20131021
  Transmission Date: 20140711
  Serious: Yes (Hospitalization, Other)
  Sender: FDA-Public Use
  Company Number: JP-VERTEX PHARMACEUTICAL INC.-AE-2012-005589

PATIENT
  Age: 54 Year
  Sex: Female

DRUGS (11)
  1. VX-950 (TELAPREVIR) [Suspect]
     Indication: CHRONIC HEPATITIS C
     Dosage: 1500 MG, QD
     Route: 048
     Dates: start: 20120224, end: 20120405
  2. REBETOL [Suspect]
     Indication: CHRONIC HEPATITIS C
     Dosage: 400 MG, QD
     Route: 048
     Dates: start: 20120224, end: 20120322
  3. REBETOL [Suspect]
     Dosage: 200 MG, QD
     Route: 048
     Dates: start: 20120323, end: 20120405
  4. PEGINTERFERON ALFA-2B [Concomitant]
     Dosage: 80 ?G, QW
     Route: 058
     Dates: start: 20120224, end: 20120405
  5. AMLODIPINE [Concomitant]
     Dosage: 5 MG, QD
     Route: 048
  6. ENALAPRIL [Concomitant]
     Dosage: 5 MG, QD
     Route: 048
  7. MYSLEE [Concomitant]
     Dosage: 5 MG, QD
     Route: 048
  8. HIRUSUKAMIN [Concomitant]
     Dosage: 5 MG, QD
     Route: 048
  9. FERRUM [Concomitant]
     Dosage: 100 MG, QD
     Route: 048
  10. HICEE [Concomitant]
     Dosage: 250 MG, QD
     Route: 048
  11. TALION [Concomitant]
     Dosage: 10 MG, QD
     Route: 048

REACTIONS (2)
  - Peritonitis [Recovered/Resolved]
  - Gastric ulcer [Recovered/Resolved]
